FAERS Safety Report 25883678 (Version 1)
Quarter: 2025Q4

REPORT INFORMATION
  Report Type: Spontaneous
  Country: US (occurrence: US)
  Receive Date: 20251006
  Receipt Date: 20251006
  Transmission Date: 20260117
  Serious: No
  Sender: CSL BEHRING
  Company Number: US-BEH-2025220379

PATIENT
  Age: 54 Year
  Sex: Female

DRUGS (6)
  1. PRIVIGEN [Suspect]
     Active Substance: HUMAN IMMUNOGLOBULIN G
     Indication: Plasma cell myeloma
     Dosage: 20 G, QMT
     Route: 042
     Dates: start: 202504
  2. PRIVIGEN [Suspect]
     Active Substance: HUMAN IMMUNOGLOBULIN G
     Indication: Benign breast neoplasm
  3. PRIVIGEN [Suspect]
     Active Substance: HUMAN IMMUNOGLOBULIN G
     Indication: Fibrocystic breast disease
  4. PRIVIGEN [Suspect]
     Active Substance: HUMAN IMMUNOGLOBULIN G
     Indication: Urinary tract imaging abnormal
  5. LENALIDOMIDE [Concomitant]
     Active Substance: LENALIDOMIDE
  6. NIVESTYM [Concomitant]
     Active Substance: FILGRASTIM-AAFI

REACTIONS (2)
  - Bone lesion [Unknown]
  - Off label use [Unknown]

NARRATIVE: CASE EVENT DATE: 20250901
